FAERS Safety Report 20489378 (Version 1)
Quarter: 2022Q1

REPORT INFORMATION
  Report Type: Spontaneous
  Country: US (occurrence: None)
  Receive Date: 20220217
  Receipt Date: 20220217
  Transmission Date: 20220423
  Serious: No
  Sender: FDA-Public Use
  Company Number: None

PATIENT
  Age: 51 Year
  Sex: Male

DRUGS (3)
  1. SKYRIZI [Suspect]
     Active Substance: RISANKIZUMAB-RZAA
     Indication: Psoriatic arthropathy
     Dosage: OTHER FREQUENCY : Q 12 W AFTER INDUC;?
     Route: 058
     Dates: start: 20220209
  2. CLOBETASOL PROP 0.05% CREAM [Concomitant]
  3. CALCIPOTRIENE 0.005% CREAM [Concomitant]

REACTIONS (6)
  - Genital burning sensation [None]
  - Oral discomfort [None]
  - Dermatitis [None]
  - Rash papular [None]
  - Rash erythematous [None]
  - Inflammation [None]
